FAERS Safety Report 7379260-3 (Version None)
Quarter: 2011Q1

REPORT INFORMATION
  Report Type: 
  Country: None (occurrence: None)
  Receive Date: 20110328
  Receipt Date: 20110216
  Transmission Date: 20110831
  Serious: Yes (Hospitalization)
  Sender: FDA-Public Use
  Company Number: BR-AMGEN-BRACT2010005629

PATIENT
  Age: 31 Year
  Sex: Female
  Weight: 53.5 kg

DRUGS (5)
  1. FILGRASTIM [Suspect]
     Indication: BREAST CANCER
     Dosage: UNK UNK, QD
     Dates: start: 20100913, end: 20101018
  2. DOCETAXEL [Concomitant]
     Indication: BREAST CANCER
     Dosage: 75 MG/M2, UNK
     Route: 042
     Dates: start: 20100526
  3. PERTUZUMAB [Concomitant]
     Indication: BREAST CANCER
     Dosage: 420 MG, UNK
     Route: 042
     Dates: start: 20100526
  4. CARBOPLATIN [Concomitant]
     Indication: BREAST CANCER
     Dosage: 1037.9 MG, UNK
     Dates: start: 20100526
  5. TRASTUZUMAB [Concomitant]
     Indication: BREAST CANCER
     Dosage: 6 MG/KG, UNK
     Route: 042
     Dates: start: 20100526

REACTIONS (2)
  - PLATELET COUNT DECREASED [None]
  - FEBRILE NEUTROPENIA [None]
